FAERS Safety Report 6691209-5 (Version None)
Quarter: 2010Q2

REPORT INFORMATION
  Report Type: 
  Country: None (occurrence: None)
  Receive Date: 20100422
  Receipt Date: 20100408
  Transmission Date: 20101027
  Serious: No
  Sender: FDA-Public Use
  Company Number: 2009BI015609

PATIENT
  Age: 36 Year
  Sex: Female

DRUGS (3)
  1. TYSABRI [Suspect]
     Indication: MULTIPLE SCLEROSIS
     Route: 042
     Dates: start: 20070501, end: 20081216
  2. TYSABRI [Suspect]
     Route: 042
     Dates: start: 20090526
  3. AVONEX [Concomitant]
     Indication: MULTIPLE SCLEROSIS
     Dates: start: 20090401

REACTIONS (4)
  - COGNITIVE DISORDER [None]
  - FATIGUE [None]
  - MEMORY IMPAIRMENT [None]
  - MULTIPLE SCLEROSIS RELAPSE [None]
